FAERS Safety Report 10203808 (Version 1)
Quarter: 2014Q2

REPORT INFORMATION
  Report Type: Spontaneous
  Country: US (occurrence: US)
  Receive Date: 20140529
  Receipt Date: 20140529
  Transmission Date: 20141212
  Serious: No
  Sender: FDA-Public Use
  Company Number: US-PFIZER INC-2014142547

PATIENT
  Age: 75 Year
  Sex: Female
  Weight: 98.87 kg

DRUGS (6)
  1. SUTENT [Suspect]
     Indication: RENAL CANCER
     Dosage: 25 MG, DAILY
     Route: 048
     Dates: start: 20130607
  2. ILEVRO [Concomitant]
  3. OFLOXACIN [Concomitant]
  4. ONDANSETRON [Concomitant]
  5. TYLENOL [Concomitant]
     Dosage: TYLENOL #3
  6. VITAMIN E [Concomitant]

REACTIONS (1)
  - Muscle strain [Unknown]
